FAERS Safety Report 16778100 (Version 1)
Quarter: 2019Q3

REPORT INFORMATION
  Report Type: Other
  Country: US (occurrence: US)
  Receive Date: 20190905
  Receipt Date: 20190905
  Transmission Date: 20191005
  Serious: Yes (Other)
  Sender: FDA-Public Use
  Company Number: US-GUTHY-RENKER, LLC-2074086

PATIENT
  Age: 59 Year
  Sex: Female

DRUGS (2)
  1. ACCELERATED DARK SPOT CORRECTOR [Concomitant]
     Active Substance: HYDROQUINONE
     Dates: start: 20190816, end: 20190818
  2. ACTIVE RADIANCE DAY MOISTURE SPF 30 [Suspect]
     Active Substance: AVOBENZONE\OCTINOXATE\OCTISALATE\OCTOCRYLENE\OXYBENZONE
     Indication: PROPHYLAXIS AGAINST SOLAR RADIATION
     Dates: start: 20190816, end: 20190818

REACTIONS (1)
  - Hypersensitivity [Recovered/Resolved]

NARRATIVE: CASE EVENT DATE: 20190818
